FAERS Safety Report 8823350 (Version 2)
Quarter: 2012Q4

REPORT INFORMATION
  Report Type: 
  Country: US (occurrence: US)
  Receive Date: 20121003
  Receipt Date: 20121102
  Transmission Date: 20130627
  Serious: Yes (Other)
  Sender: FDA-Public Use
  Company Number: US-ELI_LILLY_AND_COMPANY-US201209007096

PATIENT
  Age: 59 Year
  Sex: Female

DRUGS (12)
  1. BYETTA [Suspect]
     Indication: TYPE 2 DIABETES MELLITUS
     Dosage: 5 ug, bid
     Route: 058
     Dates: start: 20120123, end: 20120124
  2. METFORMIN [Concomitant]
     Indication: DIABETES MELLITUS
     Dosage: 1000 mg, bid
     Route: 048
  3. LANTUS [Concomitant]
     Indication: DIABETES MELLITUS
     Dosage: 35 mg, unknown
     Route: 058
  4. ZANTAC [Concomitant]
  5. LORATADINE [Concomitant]
  6. HYDROCHLOORTHIAZIDE [Concomitant]
  7. PRAVASTATIN [Concomitant]
  8. LOSARTAN [Concomitant]
  9. MAGNESIUM OXIDE [Concomitant]
  10. TYLENOL                                 /SCH/ [Concomitant]
  11. ASPIRIN                                 /USA/ [Concomitant]
  12. BISACODYL [Concomitant]

REACTIONS (1)
  - Swollen tongue [Recovered/Resolved]
